FAERS Safety Report 13487700 (Version 1)
Quarter: 2017Q2

REPORT INFORMATION
  Report Type: Spontaneous
  Country: US (occurrence: US)
  Receive Date: 20170426
  Receipt Date: 20170426
  Transmission Date: 20170830
  Serious: No
  Sender: FDA-Public Use
  Company Number: US-ALKERMES INC.-ALK-2016-003286

PATIENT
  Age: 34 Year
  Sex: Female
  Weight: 82.54 kg

DRUGS (5)
  1. CELEXA [Concomitant]
     Active Substance: CITALOPRAM HYDROBROMIDE
     Indication: PRODUCT USED FOR UNKNOWN INDICATION
  2. PRILOSEC [Concomitant]
     Active Substance: OMEPRAZOLE MAGNESIUM
     Indication: PRODUCT USED FOR UNKNOWN INDICATION
     Dosage: UNK
  3. VIVITROL [Suspect]
     Active Substance: NALTREXONE
     Dosage: 380 MG, 24-28 DAYS
     Route: 030
     Dates: start: 20161018
  4. VIVITROL [Suspect]
     Active Substance: NALTREXONE
     Indication: DRUG USE DISORDER
     Dosage: 380 MG, 24-28 DAYS
     Route: 030
     Dates: start: 201609, end: 201609
  5. VIVITROL [Suspect]
     Active Substance: NALTREXONE
     Indication: DRUG USE DISORDER
     Dosage: 380 MG, 24-28 DAYS
     Route: 030
     Dates: start: 201608, end: 201608

REACTIONS (5)
  - Drug use disorder [Recovered/Resolved]
  - Increased appetite [Unknown]
  - Head injury [Recovered/Resolved]
  - Weight increased [Not Recovered/Not Resolved]
  - Substance use disorder [Recovered/Resolved]

NARRATIVE: CASE EVENT DATE: 2016
